FAERS Safety Report 8790285 (Version 3)
Quarter: 2013Q3

REPORT INFORMATION
  Report Type: Spontaneous
  Country: US (occurrence: US)
  Receive Date: 20120917
  Receipt Date: 20130812
  Transmission Date: 20140515
  Serious: Yes (Hospitalization, Other)
  Sender: FDA-Public Use
  Company Number: US-BAYER-2012-096080

PATIENT
  Age: 47 Year
  Sex: Female
  Weight: 86.17 kg

DRUGS (23)
  1. YAZ [Suspect]
     Indication: CONTRACEPTION
     Dosage: UNK
     Dates: start: 20080303, end: 20080515
  2. SYNTHROID [Concomitant]
     Indication: HYPOTHYROIDISM
     Dosage: UNK
     Route: 048
     Dates: start: 2009
  3. ATIVAN [Concomitant]
     Dosage: 1 MG, UNK
  4. RANITIDINE [Concomitant]
  5. BYSTOLIC [Concomitant]
  6. LEVOTHYROXINE [Concomitant]
  7. VICODIN [Concomitant]
  8. MULTIVITAMIN [Concomitant]
  9. CALCIUM [Concomitant]
     Dosage: 1 TAB DAILY
     Route: 048
  10. LYRICA [Concomitant]
  11. ZITHROMAX [Concomitant]
     Dosage: 250 MG, UNK
  12. ALBUTEROL [Concomitant]
     Indication: COUGH
     Route: 045
  13. ALBUTEROL [Concomitant]
     Indication: CHEST DISCOMFORT
  14. ADVAIR [Concomitant]
  15. BIAXIN XL [Concomitant]
     Dosage: 500 MG, 2 TABLETS ONCE DAILY
     Route: 048
  16. CLARITHROMYCIN [Concomitant]
     Dosage: 500 MG,TWO ONCE D
     Route: 048
  17. AMOXI-CLAVULANICO [Concomitant]
     Dosage: 875 MG, BID
     Route: 048
  18. BENZONATATE [Concomitant]
     Dosage: 100 MG, TID
     Route: 048
  19. FLONASE [Concomitant]
     Dosage: 2 PUFFS DAILY
  20. TYLENOL EXTRA STRENGTH [Concomitant]
     Dosage: 2 TABS PRN(AS NEEDED)
     Route: 048
  21. MVI [VITAMINS NOS] [Concomitant]
     Dosage: 1 TAB DAILY
     Route: 048
  22. VITAMIN C [Concomitant]
     Dosage: 1000 MG, DAILY
     Route: 048
  23. ZANTAC [Concomitant]
     Dosage: 75 MG, PRN
     Route: 048

REACTIONS (5)
  - Pulmonary embolism [None]
  - Pulmonary embolism [Recovered/Resolved]
  - Pain [None]
  - Injury [None]
  - Pain [None]
